FAERS Safety Report 18585919 (Version 1)
Quarter: 2020Q4

REPORT INFORMATION
  Report Type: Report from Study
  Country: None (occurrence: IL)
  Receive Date: 20201207
  Receipt Date: 20201207
  Transmission Date: 20210114
  Serious: Yes (Death)
  Sender: FDA-Public Use
  Company Number: IL-ABBVIE-20K-082-3679786-00

PATIENT
  Age: 75 Year
  Sex: Male

DRUGS (2)
  1. DUODOPA [Suspect]
     Active Substance: CARBIDOPA\LEVODOPA
     Dosage: NIGHT CONTINUOUS DOSAGE (ML/H) 2.5
     Route: 050
  2. DUODOPA [Suspect]
     Active Substance: CARBIDOPA\LEVODOPA
     Indication: PARKINSON^S DISEASE
     Dosage: MORNING DOSAGE(ML) 7 CONTINUOUS DOSE  4 EXTRA DOSAGE (ML) 1 REMAINED AT 24 HRS.
     Route: 050
     Dates: start: 20180102

REACTIONS (1)
  - Death [Fatal]

NARRATIVE: CASE EVENT DATE: 20201203
